FAERS Safety Report 6239261-5 (Version None)
Quarter: 2009Q2

REPORT INFORMATION
  Report Type: 
  Country: None (occurrence: None)
  Receive Date: 20090622
  Receipt Date: 20090612
  Transmission Date: 20091009
  Serious: Yes (Hospitalization, Other)
  Sender: FDA-Public Use
  Company Number: FR-ABBOTT-09P-056-0579770-00

PATIENT
  Age: 64 Year
  Sex: Male

DRUGS (6)
  1. HUMIRA [Suspect]
     Indication: MUSCULOSKELETAL PAIN
     Dates: start: 20080101
  2. HUMIRA [Suspect]
     Indication: PSORIATIC ARTHROPATHY
  3. METHOTREXATE [Suspect]
     Indication: MUSCULOSKELETAL PAIN
  4. METHOTREXATE [Suspect]
     Indication: PSORIATIC ARTHROPATHY
  5. CORTANCYL [Suspect]
     Indication: PSORIATIC ARTHROPATHY
     Dosage: 7-10 MG/DAY
  6. CORTANCYL [Suspect]
     Indication: MUSCULOSKELETAL PAIN

REACTIONS (4)
  - ARTHRITIS BACTERIAL [None]
  - SPINAL COMPRESSION FRACTURE [None]
  - STAPHYLOCOCCAL ABSCESS [None]
  - STAPHYLOCOCCAL SEPSIS [None]
